FAERS Safety Report 8605101-X (Version None)
Quarter: 2012Q3

REPORT INFORMATION
  Report Type: 
  Country: None (occurrence: None)
  Receive Date: 20120820
  Receipt Date: 20120810
  Transmission Date: 20120928
  Serious: Yes (Hospitalization)
  Sender: FDA-Public Use
  Company Number: DK-PFIZER INC-2012198208

PATIENT
  Sex: Male

DRUGS (8)
  1. ENALAPRIL MALEATE [Concomitant]
     Indication: HYPERTENSION
     Route: 048
  2. PREDNISOLONE [Concomitant]
  3. VITAMIN D [Concomitant]
     Route: 048
  4. IRINOTECAN HCL [Suspect]
     Indication: COLORECTAL CANCER
     Dosage: 180 MG/M2, CYCLIC, 14 DAYS
     Route: 042
     Dates: start: 20120223, end: 20120412
  5. ONDANSETRON [Concomitant]
  6. FLUOROURACIL [Suspect]
     Indication: COLORECTAL CANCER
     Dosage: CYCLIC, 14 DAYS
     Dates: start: 20120223, end: 20120412
  7. AVASTIN [Suspect]
     Indication: COLORECTAL CANCER
     Dosage: 5 MG/KG, UNK
     Route: 042
     Dates: start: 20120315, end: 20120412
  8. ATROPINE [Concomitant]

REACTIONS (1)
  - FISTULA [None]
